FAERS Safety Report 8585081-6 (Version None)
Quarter: 2012Q3

REPORT INFORMATION
  Report Type: 
  Country: None (occurrence: None)
  Receive Date: 20120810
  Receipt Date: 20120802
  Transmission Date: 20120928
  Serious: Yes (Other)
  Sender: FDA-Public Use
  Company Number: CA-BRISTOL-MYERS SQUIBB COMPANY-16688756

PATIENT
  Age: 43 Year
  Sex: Female
  Weight: 78 kg

DRUGS (7)
  1. SPRYCEL [Suspect]
     Indication: CHRONIC MYELOID LEUKAEMIA
     Dates: start: 20101025, end: 20120613
  2. ADVIL [Concomitant]
     Indication: HEADACHE
     Route: 048
     Dates: start: 20000101
  3. BENEFIBER [Concomitant]
     Indication: CONSTIPATION PROPHYLAXIS
     Dates: start: 20101107
  4. CLONAZEPAM [Concomitant]
     Indication: ANXIETY
     Route: 048
     Dates: start: 20111102
  5. VITALUX [Concomitant]
     Indication: PROPHYLAXIS
     Dosage: 1DF=4 TABS
     Route: 048
     Dates: start: 20090101
  6. ADVIL [Concomitant]
     Indication: PAIN
     Route: 048
     Dates: start: 20000101
  7. SERAX [Concomitant]
     Indication: INSOMNIA
     Dates: start: 20101001

REACTIONS (1)
  - LYMPHADENOPATHY [None]
